FAERS Safety Report 11367883 (Version 1)
Quarter: 2015Q3

REPORT INFORMATION
  Report Type: Spontaneous
  Country: US (occurrence: None)
  Receive Date: 20150810
  Receipt Date: 20150810
  Transmission Date: 20151125
  Serious: No
  Sender: FDA-Public Use
  Company Number: None

PATIENT
  Age: 50 Year
  Sex: Male

DRUGS (1)
  1. HUMIRA [Suspect]
     Active Substance: ADALIMUMAB
     Indication: PSORIATIC ARTHROPATHY
     Route: 058
     Dates: start: 20150802, end: 20150807

REACTIONS (4)
  - Nail discolouration [None]
  - Skin swelling [None]
  - Fungal infection [None]
  - Purulence [None]

NARRATIVE: CASE EVENT DATE: 20150301
